FAERS Safety Report 8499292-1 (Version None)
Quarter: 2012Q3

REPORT INFORMATION
  Report Type: 
  Country: None (occurrence: None)
  Receive Date: 20120710
  Receipt Date: 20120705
  Transmission Date: 20120928
  Serious: Yes (Hospitalization)
  Sender: FDA-Public Use
  Company Number: PHHY2012JP040135

PATIENT
  Age: 69 Year
  Sex: Female

DRUGS (2)
  1. ZOMETA [Suspect]
     Indication: BONE LESION
     Route: 041
  2. HERCEPTIN [Concomitant]
     Route: 041

REACTIONS (2)
  - FEMORAL NECK FRACTURE [None]
  - PAIN [None]
